FAERS Safety Report 8042974-6 (Version None)
Quarter: 2012Q1

REPORT INFORMATION
  Report Type: 
  Country: None (occurrence: None)
  Receive Date: 20120112
  Receipt Date: 20120104
  Transmission Date: 20120608
  Serious: Yes (Disabling)
  Sender: FDA-Public Use
  Company Number: PHHY2011FR79812

PATIENT
  Sex: Female
  Weight: 81 kg

DRUGS (9)
  1. XANAX [Concomitant]
     Dosage: UNK
     Route: 065
  2. GLEEVEC [Suspect]
     Indication: CHRONIC MYELOID LEUKAEMIA
     Dosage: 400 MG, QD
     Dates: start: 20110321
  3. POTASSIUM CHLORIDE [Concomitant]
     Dosage: UNK
  4. LUTENYL [Concomitant]
     Dosage: 1 TABLET DAILY
     Route: 065
  5. ALPRAZOLAM [Concomitant]
     Dosage: UNK
     Route: 065
  6. LASIX [Concomitant]
     Dosage: UNK
  7. SERPLEX [Concomitant]
     Dosage: UNK
  8. GLEEVEC [Suspect]
     Dosage: 300 MG, QD
  9. ESCITALOPRAM OXALATE [Concomitant]
     Dosage: UNK
     Route: 065
     Dates: start: 20110601

REACTIONS (7)
  - FEELING ABNORMAL [None]
  - PETIT MAL EPILEPSY [None]
  - MUSCULOSKELETAL DISCOMFORT [None]
  - AMNESIA [None]
  - NAUSEA [None]
  - DIZZINESS [None]
  - DIARRHOEA [None]
